FAERS Safety Report 22263354 (Version 1)
Quarter: 2023Q2

REPORT INFORMATION
  Report Type: Spontaneous
  Country: US (occurrence: US)
  Receive Date: 20230428
  Receipt Date: 20230428
  Transmission Date: 20230721
  Serious: Yes (Other)
  Sender: FDA-Public Use
  Company Number: US-PIRAMAL CRITICAL CARE LIMITED-2023-PEL-000217

PATIENT

DRUGS (1)
  1. GABLOFEN [Suspect]
     Active Substance: BACLOFEN
     Indication: Muscle spasticity
     Dosage: 1000 MICROGRAM/DAY
     Route: 037

REACTIONS (5)
  - Incoherent [Unknown]
  - Depressed level of consciousness [Unknown]
  - Feeling abnormal [Unknown]
  - Overdose [Unknown]
  - Hypotonia [Unknown]
